FAERS Safety Report 25827792 (Version 1)
Quarter: 2025Q3

REPORT INFORMATION
  Report Type: Spontaneous
  Country: US (occurrence: US)
  Receive Date: 20250921
  Receipt Date: 20250921
  Transmission Date: 20251021
  Serious: No
  Sender: SANOFI AVENTIS
  Company Number: US-SA-2025SA279200

PATIENT
  Age: 61 Year
  Sex: Female

DRUGS (17)
  1. DUPIXENT [Suspect]
     Active Substance: DUPILUMAB
     Indication: Hyperlipidaemia
     Dosage: 300 MG, QOW
     Route: 058
     Dates: start: 202508
  2. AMLODIPINE [Concomitant]
     Active Substance: AMLODIPINE BESYLATE
  3. ARIPIPRAZOLE [Concomitant]
     Active Substance: ARIPIPRAZOLE
  4. ASPIRIN [Concomitant]
     Active Substance: ASPIRIN
  5. ATORVASTATIN [Concomitant]
     Active Substance: ATORVASTATIN
  6. CHANTIX [Concomitant]
     Active Substance: VARENICLINE TARTRATE
  7. DOCUSATE [Concomitant]
     Active Substance: DOCUSATE
  8. DULERA [Concomitant]
     Active Substance: FORMOTEROL FUMARATE DIHYDRATE\MOMETASONE FUROATE
  9. DULOXETINE [Concomitant]
     Active Substance: DULOXETINE
  10. HYDROXYZINE [Concomitant]
     Active Substance: HYDROXYZINE HYDROCHLORIDE
  11. INSULIN ASPART [Concomitant]
     Active Substance: INSULIN ASPART
  12. LAMOTRIGINE [Concomitant]
     Active Substance: LAMOTRIGINE
  13. METOPROLOL [Concomitant]
     Active Substance: METOPROLOL
  14. MONTELUKAST [Concomitant]
     Active Substance: MONTELUKAST
  15. OMEPRAZOLE [Concomitant]
     Active Substance: OMEPRAZOLE
  16. SPIRIVA [Concomitant]
     Active Substance: TIOTROPIUM BROMIDE MONOHYDRATE
  17. VITAMIN D3 [Concomitant]
     Active Substance: CHOLECALCIFEROL

REACTIONS (1)
  - Product use in unapproved indication [Unknown]

NARRATIVE: CASE EVENT DATE: 20250801
